FAERS Safety Report 14708261 (Version 7)
Quarter: 2018Q3

REPORT INFORMATION
  Report Type: Report from Study
  Country: US (occurrence: US)
  Receive Date: 20180403
  Receipt Date: 20180817
  Transmission Date: 20181010
  Serious: Yes (Other)
  Sender: FDA-Public Use
  Company Number: US-TESARO, INC-US-2018TSO01284

PATIENT
  Sex: Female

DRUGS (4)
  1. ZEJULA [Suspect]
     Active Substance: NIRAPARIB
     Dosage: 300 MG, QD
     Route: 048
     Dates: start: 20180311
  2. ZEJULA [Suspect]
     Active Substance: NIRAPARIB
     Dosage: 200 MG, QD
     Route: 048
     Dates: start: 201804
  3. ZEJULA [Suspect]
     Active Substance: NIRAPARIB
     Indication: OVARIAN CANCER
     Dosage: 300 MG, QD
     Route: 048
     Dates: start: 20180308
  4. ZEJULA [Suspect]
     Active Substance: NIRAPARIB
     Dosage: 200 MG, UNK
     Route: 048

REACTIONS (26)
  - Middle insomnia [Recovering/Resolving]
  - Onychoclasis [Unknown]
  - Hunger [Unknown]
  - Fluid retention [Not Recovered/Not Resolved]
  - Exostosis [Unknown]
  - Arthritis [Unknown]
  - Nausea [Unknown]
  - Platelet count decreased [Recovered/Resolved]
  - Nail bed disorder [Unknown]
  - Sleep disorder [Unknown]
  - Abdominal distension [Recovering/Resolving]
  - Abdominal discomfort [Not Recovered/Not Resolved]
  - Weight bearing difficulty [Unknown]
  - Arthralgia [Not Recovered/Not Resolved]
  - Joint effusion [Not Recovered/Not Resolved]
  - Stress [Unknown]
  - Limb discomfort [Unknown]
  - Weight increased [Unknown]
  - Knee deformity [Unknown]
  - Emotional distress [Unknown]
  - Initial insomnia [Recovering/Resolving]
  - Gait disturbance [Unknown]
  - Blood count abnormal [Unknown]
  - Peripheral swelling [Unknown]
  - Pain in extremity [Unknown]
  - Fatigue [Unknown]
